FAERS Safety Report 12765588 (Version 3)
Quarter: 2020Q4

REPORT INFORMATION
  Report Type: Spontaneous
  Country: US (occurrence: US)
  Receive Date: 20160921
  Receipt Date: 20201028
  Transmission Date: 20210113
  Serious: Yes (Hospitalization)
  Sender: FDA-Public Use
  Company Number: US-JNJFOC-20160827122

PATIENT
  Age: 30 Year
  Sex: Female
  Weight: 185.69 kg

DRUGS (2)
  1. XARELTO [Suspect]
     Active Substance: RIVAROXABAN
     Indication: PULMONARY EMBOLISM
     Route: 048
     Dates: start: 20150426, end: 201505
  2. XARELTO [Suspect]
     Active Substance: RIVAROXABAN
     Route: 048
     Dates: start: 2015

REACTIONS (1)
  - Menorrhagia [Recovered/Resolved]

NARRATIVE: CASE EVENT DATE: 20150430
